FAERS Safety Report 7098122-2 (Version None)
Quarter: 2010Q4

REPORT INFORMATION
  Report Type: 
  Country: None (occurrence: None)
  Receive Date: 20101112
  Receipt Date: 20101104
  Transmission Date: 20110411
  Serious: Yes (Other)
  Sender: FDA-Public Use
  Company Number: US-ABBOTT-10P-163-0683364-00

PATIENT
  Sex: Female

DRUGS (1)
  1. LUPRON DEPOT [Suspect]
     Indication: PRODUCT USED FOR UNKNOWN INDICATION

REACTIONS (6)
  - ADVERSE DRUG REACTION [None]
  - ARTHROPATHY [None]
  - HOT FLUSH [None]
  - HYSTERECTOMY [None]
  - MOOD ALTERED [None]
  - NIGHT SWEATS [None]
